FAERS Safety Report 16102018 (Version 1)
Quarter: 2019Q1

REPORT INFORMATION
  Report Type: Spontaneous
  Country: GB (occurrence: GB)
  Receive Date: 20190321
  Receipt Date: 20190321
  Transmission Date: 20190418
  Serious: No
  Sender: FDA-Public Use
  Company Number: GB-AKRON, INC.-2064387

PATIENT
  Age: 63 Year
  Sex: Male

DRUGS (1)
  1. COSOPT [Suspect]
     Active Substance: DORZOLAMIDE HYDROCHLORIDE\TIMOLOL MALEATE
     Indication: PRODUCT USED FOR UNKNOWN INDICATION
     Route: 047

REACTIONS (3)
  - Eyelid pain [Recovered/Resolved]
  - Swelling of eyelid [Recovered/Resolved]
  - Eyelid skin dryness [Recovered/Resolved]
